FAERS Safety Report 24864392 (Version 1)
Quarter: 2025Q1

REPORT INFORMATION
  Report Type: Spontaneous
  Country: SA (occurrence: SA)
  Receive Date: 20250120
  Receipt Date: 20250120
  Transmission Date: 20250409
  Serious: Yes (Other)
  Sender: AMGEN
  Company Number: SA-AMGEN-SAUSP2025008400

PATIENT

DRUGS (2)
  1. ADALIMUMAB [Suspect]
     Active Substance: ADALIMUMAB
     Indication: Crohn^s disease
     Route: 065
  2. ADALIMUMAB [Suspect]
     Active Substance: ADALIMUMAB
     Indication: Colitis ulcerative

REACTIONS (8)
  - Cholangitis sclerosing [Unknown]
  - Metabolic dysfunction-associated steatohepatitis [Unknown]
  - Portal vein thrombosis [Unknown]
  - Autoimmune hepatitis [Unknown]
  - Hepatitis viral [Unknown]
  - Cholelithiasis [Unknown]
  - Pancreatitis [Unknown]
  - Hepatic cyst [Unknown]
